FAERS Safety Report 7203965-8 (Version None)
Quarter: 2010Q4

REPORT INFORMATION
  Report Type: 
  Country: None (occurrence: None)
  Receive Date: 20101230
  Receipt Date: 20101221
  Transmission Date: 20110411
  Serious: Yes (Hospitalization)
  Sender: FDA-Public Use
  Company Number: FR-ELI_LILLY_AND_COMPANY-FR201009008051

PATIENT
  Sex: Male

DRUGS (6)
  1. ZYPREXA [Suspect]
     Indication: BIPOLAR DISORDER
     Dosage: 5 MG, DAILY (1/D)
     Route: 048
     Dates: end: 20100825
  2. PROZAC [Suspect]
     Indication: ALCOHOL WITHDRAWAL SYNDROME
     Dosage: 1 TABLET, DAILY (1/D)
     Route: 048
     Dates: start: 20100101, end: 20100401
  3. PROZAC [Suspect]
     Dosage: UNK, DAILY (1/D)
     Route: 048
     Dates: start: 20100805
  4. XANAX [Concomitant]
     Indication: ALCOHOL WITHDRAWAL SYNDROME
     Dosage: 0.75 MG, DAILY (1/D)
     Route: 048
     Dates: end: 20100825
  5. BISOPROLOL FUMARATE [Concomitant]
     Indication: BLOOD PRESSURE INCREASED
     Dosage: 10 MG, DAILY (1/D)
     Route: 048
     Dates: start: 20100101, end: 20100825
  6. ANAFRANIL [Concomitant]
     Indication: DEPRESSION
     Dosage: UNK, UNKNOWN
     Route: 048
     Dates: start: 20100805

REACTIONS (3)
  - HEPATITIS ACUTE [None]
  - OFF LABEL USE [None]
  - THROMBOCYTOPENIA [None]
